FAERS Safety Report 10433307 (Version 1)
Quarter: 2014Q3

REPORT INFORMATION
  Report Type: Spontaneous
  Country: US (occurrence: US)
  Receive Date: 20140905
  Receipt Date: 20140905
  Transmission Date: 20150326
  Serious: No
  Sender: FDA-Public Use
  Company Number: US-PFIZER INC-2014245395

PATIENT
  Age: 70 Year
  Sex: Female
  Weight: 68.03 kg

DRUGS (8)
  1. LYRICA [Suspect]
     Active Substance: PREGABALIN
     Indication: CYSTITIS INTERSTITIAL
     Dosage: 75 MG, 2X/DAY
     Route: 048
     Dates: start: 201407, end: 201408
  2. OXYCODONE [Concomitant]
     Active Substance: OXYCODONE
     Indication: CYSTITIS INTERSTITIAL
     Dosage: UNK
  3. PAXIL [Concomitant]
     Active Substance: PAROXETINE HYDROCHLORIDE
     Dosage: UNK
  4. BACTRIM [Concomitant]
     Active Substance: SULFAMETHOXAZOLE\TRIMETHOPRIM
     Indication: URINARY TRACT INFECTION
     Dosage: UNK
  5. AUGMENTIN [Concomitant]
     Active Substance: AMOXICILLIN\CLAVULANATE POTASSIUM
     Indication: URINARY TRACT INFECTION
     Dosage: UNK
  6. LYRICA [Suspect]
     Active Substance: PREGABALIN
     Dosage: UNK
     Route: 048
     Dates: start: 20140901
  7. LOSARTAN [Concomitant]
     Active Substance: LOSARTAN
     Indication: HYPERTENSION
     Dosage: UNK
  8. INSULIN [Concomitant]
     Active Substance: INSULIN NOS
     Indication: DIABETES MELLITUS
     Dosage: UNK

REACTIONS (8)
  - Peripheral swelling [Recovering/Resolving]
  - Lymphoedema [Recovering/Resolving]
  - Cystitis interstitial [Unknown]
  - Erythema [Recovering/Resolving]
  - Joint swelling [Recovering/Resolving]
  - Dizziness [Recovering/Resolving]
  - Skin disorder [Unknown]
  - Blood creatinine increased [Unknown]

NARRATIVE: CASE EVENT DATE: 2014
